FAERS Safety Report 5669015-X (Version None)
Quarter: 2008Q1

REPORT INFORMATION
  Report Type: 
  Country: None (occurrence: None)
  Receive Date: 20080312
  Receipt Date: 20080312
  Transmission Date: 20080703
  Serious: Yes (Life-Threatening)
  Sender: FDA-Public Use
  Company Number: None

PATIENT
  Age: 50 Year
  Sex: Female
  Weight: 71.6683 kg

DRUGS (1)
  1. DOCETAXEL [Suspect]
     Indication: PERITONEAL CARCINOMA
     Dosage: 80MG/M2 = 145MG EVERY 3 WEEKS IV
     Route: 042
     Dates: start: 20080214, end: 20080214

REACTIONS (9)
  - BLOOD PRESSURE INCREASED [None]
  - CHILLS [None]
  - DYSPNOEA [None]
  - FLUSHING [None]
  - HEART RATE INCREASED [None]
  - INFUSION RELATED REACTION [None]
  - PALLOR [None]
  - PERIPHERAL COLDNESS [None]
  - RESPIRATORY RATE INCREASED [None]
